FAERS Safety Report 10593359 (Version 3)
Quarter: 2014Q4

REPORT INFORMATION
  Report Type: Report from Study
  Country: JP (occurrence: JP)
  Receive Date: 20141119
  Receipt Date: 20141202
  Transmission Date: 20150529
  Serious: Yes (Death, Hospitalization)
  Sender: FDA-Public Use
  Company Number: JP-EISAI MEDICAL RESEARCH-E2020-13940-SOL-JP

PATIENT
  Age: 85 Year
  Sex: Female

DRUGS (8)
  1. ARICEPT [Suspect]
     Active Substance: DONEPEZIL HYDROCHLORIDE
     Indication: DEMENTIA ALZHEIMER^S TYPE
     Route: 048
     Dates: start: 20110929, end: 20120405
  2. ARICEPT [Suspect]
     Active Substance: DONEPEZIL HYDROCHLORIDE
     Route: 048
     Dates: start: 20140822, end: 20141003
  3. EBRANTIL [Concomitant]
     Active Substance: URAPIDIL
  4. ARICEPT [Suspect]
     Active Substance: DONEPEZIL HYDROCHLORIDE
     Route: 048
     Dates: start: 20120406, end: 20140804
  5. EXCELASE [Concomitant]
  6. MEMARY [Concomitant]
     Active Substance: MEMANTINE HYDROCHLORIDE
  7. BIO-THREE [Concomitant]
     Active Substance: HERBALS
  8. HIRUDOID [Concomitant]
     Active Substance: GLYCOSAMINOGLYCANS

REACTIONS (2)
  - Gastroenteritis [Recovering/Resolving]
  - Diarrhoea [Fatal]

NARRATIVE: CASE EVENT DATE: 201312
